FAERS Safety Report 10308578 (Version 1)
Quarter: 2014Q3

REPORT INFORMATION
  Report Type: Report from Study
  Country: US (occurrence: US)
  Receive Date: 20140716
  Receipt Date: 20140716
  Transmission Date: 20150326
  Serious: Yes (Hospitalization, Other)
  Sender: FDA-Public Use
  Company Number: PHHY2012US131888

PATIENT
  Age: 57 Year
  Sex: Male

DRUGS (18)
  1. AVASTIN [Suspect]
     Active Substance: BEVACIZUMAB
     Dosage: 1.25 MG, UNK
     Route: 031
     Dates: start: 20130703
  2. LUCENTIS [Suspect]
     Active Substance: RANIBIZUMAB
     Indication: DIABETIC RETINOPATHY
     Dosage: 0.5 MG, QMO
     Route: 031
     Dates: start: 20111228
  3. AVASTIN [Suspect]
     Active Substance: BEVACIZUMAB
     Dosage: 1.25 MG, UNK
     Route: 031
     Dates: start: 20120822
  4. LUCENTIS [Suspect]
     Active Substance: RANIBIZUMAB
     Indication: DIABETIC EYE DISEASE
     Dosage: 0.5 MG, QMO
     Route: 031
     Dates: start: 20120125
  5. AVASTIN [Suspect]
     Active Substance: BEVACIZUMAB
     Dosage: 1.25 MG, UNK
     Route: 031
     Dates: start: 20120711
  6. TROPICAMIDE. [Concomitant]
     Active Substance: TROPICAMIDE
     Dosage: DROPS
     Route: 047
  7. PROPARACAINE [Concomitant]
     Active Substance: PROPARACAINE
     Indication: ANAESTHESIA
     Dosage: UNK
     Route: 061
  8. AVASTIN [Suspect]
     Active Substance: BEVACIZUMAB
     Indication: DIABETIC RETINAL OEDEMA
     Dosage: 25 MG, 1 IN 1 AS REQUIRED
     Route: 031
  9. COMBIGAN [Concomitant]
     Active Substance: BRIMONIDINE TARTRATE\TIMOLOL MALEATE
     Indication: INTRAOCULAR PRESSURE INCREASED
  10. BETADINE [Concomitant]
     Active Substance: POVIDONE-IODINE
     Dosage: UNK
     Route: 061
  11. TRIESENCE [Suspect]
     Active Substance: TRIAMCINOLONE ACETONIDE
     Indication: DIABETIC RETINAL OEDEMA
     Dosage: 2 MG, PER DAY AS REQUIRED
     Route: 031
  12. LUCENTIS [Suspect]
     Active Substance: RANIBIZUMAB
     Indication: DIABETIC RETINAL OEDEMA
     Dosage: 0.5 MG, QMO
     Route: 031
     Dates: start: 20111220
  13. LUCENTIS [Suspect]
     Active Substance: RANIBIZUMAB
     Dosage: 0.5 MG, QMO
     Route: 031
     Dates: start: 20120404
  14. PREDNISONE. [Suspect]
     Active Substance: PREDNISONE
     Dosage: UNK
  15. PHENYLEPHRINE [Concomitant]
     Active Substance: PHENYLEPHRINE\PHENYLEPHRINE HYDROCHLORIDE
     Dosage: DROPS
     Route: 047
  16. LIDOCAINE. [Concomitant]
     Active Substance: LIDOCAINE
     Indication: ANAESTHESIA
     Dosage: UNK
     Route: 057
  17. COMBIGAN [Concomitant]
     Active Substance: BRIMONIDINE TARTRATE\TIMOLOL MALEATE
     Indication: GLAUCOMA
     Dosage: 1 GTT, 2 IN 1 DAY
     Route: 047
  18. CIPROFLOXACIN. [Concomitant]
     Active Substance: CIPROFLOXACIN
     Dosage: 1 GTT, 4 IN 1 DAY
     Route: 047

REACTIONS (12)
  - Meibomian gland dysfunction [Unknown]
  - Blood glucose increased [Unknown]
  - Off label use [Unknown]
  - Eye naevus [Unknown]
  - Intraocular pressure increased [Unknown]
  - Cataract [Unknown]
  - Diabetic retinal oedema [Unknown]
  - Conjunctival haemorrhage [Unknown]
  - Pneumonia [Unknown]
  - Vision blurred [Unknown]
  - Eye pain [Unknown]
  - Vitreous floaters [Unknown]

NARRATIVE: CASE EVENT DATE: 20120313
